FAERS Safety Report 5063995-1 (Version None)
Quarter: 2006Q3

REPORT INFORMATION
  Report Type: 
  Country: None (occurrence: None)
  Receive Date: 20060703
  Receipt Date: 20050913
  Transmission Date: 20061208
  Serious: No
  Sender: FDA-Public Use
  Company Number: 2005S1009049

PATIENT
  Age: 35 Year
  Sex: Male
  Weight: 86.1834 kg

DRUGS (4)
  1. CLOZAPINE [Suspect]
     Indication: SCHIZOPHRENIA, PARANOID TYPE
     Dosage: 300 MG;HS;PO
     Route: 048
  2. BENZTROPINE MESYLATE [Concomitant]
  3. CLONAZEPAM [Concomitant]
  4. VALPROIC ACID [Concomitant]

REACTIONS (1)
  - GRANULOCYTOPENIA [None]
